FAERS Safety Report 16082245 (Version 1)
Quarter: 2019Q1

REPORT INFORMATION
  Report Type: Report from Study
  Country: CA (occurrence: CA)
  Receive Date: 20190317
  Receipt Date: 20190317
  Transmission Date: 20190418
  Serious: Yes (Disabling, Other)
  Sender: FDA-Public Use
  Company Number: CA-CELLTRION INC.-2018CA023149

PATIENT

DRUGS (8)
  1. NAPROXEN. [Concomitant]
     Active Substance: NAPROXEN
     Dosage: 500 MG
     Route: 048
  2. PANTOLOC [PANTOPRAZOLE] [Concomitant]
     Active Substance: PANTOPRAZOLE SODIUM
     Dosage: 40 MG
  3. VITAMIN D3 [Concomitant]
     Active Substance: CHOLECALCIFEROL
     Dosage: 1,000-2 CAPSULES ONCE DAILY
  4. INFLECTRA [Suspect]
     Active Substance: INFLIXIMAB-DYYB
     Indication: RHEUMATOID ARTHRITIS
     Dosage: 405 MG EVERY 6 WEEKS
     Route: 042
     Dates: start: 20160628, end: 20161214
  5. MORPHINE HCL [Concomitant]
     Active Substance: MORPHINE HYDROCHLORIDE
     Dosage: 10MG ORAL TABLET
     Route: 048
  6. MAVIK [Concomitant]
     Active Substance: TRANDOLAPRIL
     Dosage: 1 MG
  7. ADALAT CC [Concomitant]
     Active Substance: NIFEDIPINE
     Dosage: 60MG TABLET, 1 TABLE ONCE DAILY, DURATION 30 DAYS STARTING
     Dates: start: 20170223
  8. VITAMIN B12 [VITAMIN B12 NOS] [Concomitant]
     Active Substance: CYANOCOBALAMIN
     Dosage: 100MCG/ML

REACTIONS (3)
  - Blindness [Not Recovered/Not Resolved]
  - Necrotising herpetic retinopathy [Unknown]
  - Uveitis [Unknown]

NARRATIVE: CASE EVENT DATE: 20180214
